FAERS Safety Report 8077348-5 (Version None)
Quarter: 2012Q1

REPORT INFORMATION
  Report Type: 
  Country: None (occurrence: None)
  Receive Date: 20120127
  Receipt Date: 20120124
  Transmission Date: 20120608
  Serious: Yes (Other)
  Sender: FDA-Public Use
  Company Number: PHHY2012IT004632

PATIENT
  Sex: Male

DRUGS (1)
  1. VOLTAREN [Suspect]
     Route: 048
     Dates: start: 20111218, end: 20111218

REACTIONS (3)
  - PALATAL OEDEMA [None]
  - PHARYNGEAL OEDEMA [None]
  - DYSPHONIA [None]
